FAERS Safety Report 4936570-4 (Version None)
Quarter: 2006Q1

REPORT INFORMATION
  Report Type: 
  Country: None (occurrence: None)
  Receive Date: 20060302
  Receipt Date: 20060206
  Transmission Date: 20060701
  Serious: No
  Sender: FDA-Public Use
  Company Number: US200602001278

PATIENT
  Age: 9 Year
  Sex: Female

DRUGS (1)
  1. STRATTERA [Suspect]

REACTIONS (3)
  - ASPARTATE AMINOTRANSFERASE INCREASED [None]
  - BLOOD SODIUM INCREASED [None]
  - MEAN CELL VOLUME DECREASED [None]
